FAERS Safety Report 7644575-8 (Version None)
Quarter: 2011Q3

REPORT INFORMATION
  Report Type: 
  Country: None (occurrence: None)
  Receive Date: 20110729
  Receipt Date: 20110726
  Transmission Date: 20111222
  Serious: Yes (Other)
  Sender: FDA-Public Use
  Company Number: US-PFIZER INC-2011098679

PATIENT
  Sex: Female
  Weight: 67.12 kg

DRUGS (5)
  1. CHANTIX [Suspect]
     Dosage: 1 MG, 2X/DAY
     Route: 048
     Dates: start: 20110501, end: 20110101
  2. XANAX [Suspect]
     Indication: ANXIETY
     Dosage: UNK
     Dates: start: 20110501, end: 20110501
  3. CHANTIX [Suspect]
     Dosage: 0.5 MG, 1X/DAY
     Route: 048
     Dates: start: 20110501, end: 20110501
  4. CHANTIX [Suspect]
     Dosage: UNK
     Route: 048
     Dates: start: 20110501, end: 20110501
  5. ACETYLSALICYLIC ACID [Concomitant]
     Indication: BLOOD CHOLESTEROL INCREASED
     Dosage: 81 MG, 1X/DAY

REACTIONS (3)
  - ANXIETY [None]
  - AGITATION [None]
  - EMOTIONAL DISORDER [None]
